FAERS Safety Report 9744118 (Version 1)
Quarter: 2013Q4

REPORT INFORMATION
  Report Type: Spontaneous
  Country: US (occurrence: US)
  Receive Date: 20131210
  Receipt Date: 20131210
  Transmission Date: 20140711
  Serious: No
  Sender: FDA-Public Use
  Company Number: US-BAYER-2013-150861

PATIENT
  Age: 83 Year
  Sex: Female

DRUGS (1)
  1. ALEVE CAPLET [Suspect]

REACTIONS (1)
  - Drug ineffective [None]
